FAERS Safety Report 16171184 (Version 1)
Quarter: 2019Q2

REPORT INFORMATION
  Report Type: Spontaneous
  Country: FR (occurrence: FR)
  Receive Date: 20190408
  Receipt Date: 20190408
  Transmission Date: 20190711
  Serious: Yes (Other)
  Sender: FDA-Public Use
  Company Number: FR-MYLANLABS-2019M1032185

PATIENT
  Sex: Female

DRUGS (4)
  1. LEXOMIL [Suspect]
     Active Substance: BROMAZEPAM
     Indication: PRODUCT USED FOR UNKNOWN INDICATION
     Dosage: 6 MILLIGRAM
     Route: 065
     Dates: start: 20181108
  2. TRAMADOL. [Suspect]
     Active Substance: TRAMADOL
     Indication: PRODUCT USED FOR UNKNOWN INDICATION
     Dosage: 50 MILLIGRAM
     Route: 065
     Dates: start: 20181108
  3. LOPERAMIDE [Suspect]
     Active Substance: LOPERAMIDE
     Indication: PRODUCT USED FOR UNKNOWN INDICATION
     Dosage: 2 MILLIGRAM
     Route: 065
     Dates: start: 20181108
  4. LERCANIDIPINE [Suspect]
     Active Substance: LERCANIDIPINE
     Indication: PRODUCT USED FOR UNKNOWN INDICATION
     Dosage: 10 MILLIGRAM
     Route: 065
     Dates: start: 20181108

REACTIONS (2)
  - Drug abuse [Not Recovered/Not Resolved]
  - Prescription form tampering [Not Recovered/Not Resolved]

NARRATIVE: CASE EVENT DATE: 20181108
